FAERS Safety Report 12897544 (Version 1)
Quarter: 2016Q4

REPORT INFORMATION
  Report Type: Spontaneous
  Country: None (occurrence: NL)
  Receive Date: 20161031
  Receipt Date: 20161031
  Transmission Date: 20170207
  Serious: Yes (Other)
  Sender: FDA-Public Use
  Company Number: NL-MERCK KGAA-1059065

PATIENT

DRUGS (1)
  1. NOVOTHYROX [Suspect]
     Active Substance: LEVOTHYROXINE SODIUM

REACTIONS (11)
  - Retching [None]
  - Fatigue [None]
  - Laryngeal oedema [None]
  - Burning sensation [None]
  - Choking sensation [None]
  - Frustration tolerance decreased [None]
  - Depressed mood [None]
  - Vomiting [None]
  - Muscular weakness [None]
  - Dysphonia [None]
  - Eczema [None]
